FAERS Safety Report 9461174 (Version 1)
Quarter: 2013Q3

REPORT INFORMATION
  Report Type: Spontaneous
  Country: US (occurrence: None)
  Receive Date: 20130814
  Receipt Date: 20130814
  Transmission Date: 20140515
  Serious: Yes (Life-Threatening)
  Sender: FDA-Public Use
  Company Number: None

PATIENT
  Age: 58 Year
  Sex: Male
  Weight: 104.33 kg

DRUGS (2)
  1. ADVIL [Suspect]
     Indication: PAIN
     Dosage: 2 GEL-CAPS 1 TIME ORAL
     Route: 048
     Dates: start: 20130319
  2. ADVIL [Suspect]
     Indication: INFLAMMATION
     Dosage: 2 GEL-CAPS 1 TIME ORAL
     Route: 048
     Dates: start: 20130319

REACTIONS (4)
  - Anaphylactic shock [None]
  - Blindness transient [None]
  - Loss of consciousness [None]
  - Blood pressure decreased [None]
